FAERS Safety Report 17504121 (Version 1)
Quarter: 2020Q1

REPORT INFORMATION
  Report Type: Spontaneous
  Country: US (occurrence: US)
  Receive Date: 20200305
  Receipt Date: 20200305
  Transmission Date: 20200409
  Serious: No
  Sender: FDA-Public Use
  Company Number: US-BAYER-2020-039517

PATIENT

DRUGS (1)
  1. ALEVE [Suspect]
     Active Substance: NAPROXEN SODIUM
     Dosage: 1 DF, QD
     Dates: start: 2019

REACTIONS (2)
  - Therapeutic response unexpected [None]
  - Inappropriate schedule of product administration [None]

NARRATIVE: CASE EVENT DATE: 2019
